FAERS Safety Report 9459946 (Version 3)
Quarter: 2013Q4

REPORT INFORMATION
  Report Type: Spontaneous
  Country: RU (occurrence: RU)
  Receive Date: 20130815
  Receipt Date: 20131213
  Transmission Date: 20140711
  Serious: Yes (Death, Other)
  Sender: FDA-Public Use
  Company Number: RU-BAYER-2013-098777

PATIENT
  Age: 61 Year
  Sex: Male
  Weight: 105 kg

DRUGS (5)
  1. ULTRAVIST [Suspect]
     Indication: ARTERIOGRAM CORONARY
     Dosage: DOSAGE/FREQUENCY OF INJECTION 180/14
     Route: 013
     Dates: start: 20130812, end: 20130812
  2. VERAPAMIL [Concomitant]
     Indication: HYPERTENSION
     Route: 048
  3. ASPIRIN [Concomitant]
     Indication: THROMBOSIS PROPHYLAXIS
  4. METFORMIN [Concomitant]
     Indication: DIABETES MELLITUS
     Route: 048
  5. ROSUVASTATIN [Concomitant]
     Indication: DYSLIPIDAEMIA
     Route: 048

REACTIONS (6)
  - Chills [Fatal]
  - Bronchospasm [Fatal]
  - Pulmonary oedema [Fatal]
  - Cardiogenic shock [Fatal]
  - Contrast media reaction [None]
  - Acute left ventricular failure [None]
